FAERS Safety Report 15822635 (Version 1)
Quarter: 2019Q1

REPORT INFORMATION
  Report Type: Spontaneous
  Country: US (occurrence: US)
  Receive Date: 20190114
  Receipt Date: 20190114
  Transmission Date: 20190417
  Serious: Yes (Hospitalization, Disabling, Other)
  Sender: FDA-Public Use
  Company Number: None

PATIENT
  Age: 39 Year
  Sex: Female
  Weight: 83.25 kg

DRUGS (2)
  1. LEVAQUIN [Suspect]
     Active Substance: LEVOFLOXACIN
     Indication: EAR INFECTION
     Route: 048
  2. CIPRO [Suspect]
     Active Substance: CIPROFLOXACIN HYDROCHLORIDE
     Indication: EAR INFECTION

REACTIONS (12)
  - Nausea [None]
  - Malaise [None]
  - Panic reaction [None]
  - Dizziness [None]
  - Anxiety [None]
  - Dysbacteriosis [None]
  - Fear [None]
  - Aneurysm [None]
  - Lactose intolerance [None]
  - Bedridden [None]
  - Abdominal discomfort [None]
  - Vomiting [None]

NARRATIVE: CASE EVENT DATE: 20190112
